FAERS Safety Report 9685226 (Version 1)
Quarter: 2013Q4

REPORT INFORMATION
  Report Type: Spontaneous
  Country: US (occurrence: None)
  Receive Date: 20131112
  Receipt Date: 20131112
  Transmission Date: 20140711
  Serious: Yes (Death)
  Sender: FDA-Public Use
  Company Number: None

PATIENT
  Age: 72 Year
  Sex: Female
  Weight: 85.6 kg

DRUGS (14)
  1. NILOTINIB [Suspect]
     Indication: CHRONIC MYELOID LEUKAEMIA
     Dosage: 2 PILLS, BID, ORAL
     Dates: start: 20131102, end: 20131108
  2. NILOTINIB [Suspect]
     Indication: RECURRENT CANCER
     Dosage: 2 PILLS, BID, ORAL
     Dates: start: 20131102, end: 20131108
  3. ALLOPURINOL [Concomitant]
  4. DIGOXIN [Concomitant]
  5. FENTANYL [Concomitant]
  6. FUROSEMIDE [Concomitant]
  7. HYDRALAZINE [Concomitant]
  8. INSULIN NPH [Concomitant]
  9. INSULIN [Concomitant]
  10. METOPROLOL [Concomitant]
  11. NILOTINIB [Concomitant]
  12. ONDANSETRON [Concomitant]
  13. OXYCODONE [Concomitant]
  14. POTASSIUM CHL [Concomitant]

REACTIONS (8)
  - Cardiac arrest [None]
  - Hypotension [None]
  - Bradycardia [None]
  - Convulsion [None]
  - Hypothermia [None]
  - Nausea [None]
  - Pain [None]
  - Cardioactive drug level increased [None]
